FAERS Safety Report 9136834 (Version 1)
Quarter: 2013Q1

REPORT INFORMATION
  Report Type: Spontaneous
  Country: US (occurrence: US)
  Receive Date: 20130304
  Receipt Date: 20130304
  Transmission Date: 20140127
  Serious: No
  Sender: FDA-Public Use
  Company Number: US-ABBOTT-12P-163-0941241-00

PATIENT
  Age: 49 Year
  Sex: Male

DRUGS (3)
  1. ANDROGEL 1% [Suspect]
     Indication: BLOOD TESTOSTERONE DECREASED
     Dates: start: 2009
  2. NORCO [Concomitant]
     Indication: PAIN
  3. MORPHINE [Concomitant]
     Indication: PAIN

REACTIONS (1)
  - Breath alcohol test positive [Unknown]
